FAERS Safety Report 10104798 (Version 2)
Quarter: 2014Q2

REPORT INFORMATION
  Report Type: Report from Study
  Country: CH (occurrence: CH)
  Receive Date: 20140424
  Receipt Date: 20140424
  Transmission Date: 20141212
  Serious: Yes (Hospitalization)
  Sender: FDA-Public Use
  Company Number: CH-B.I. PHARMACEUTICALS,INC./RIDGEFIELD-2014-BI-07731SI

PATIENT
  Age: 53 Year
  Sex: Female

DRUGS (1)
  1. AFATINIB [Suspect]
     Indication: NON-SMALL CELL LUNG CANCER
     Dosage: 40 MG
     Route: 048
     Dates: start: 20131223, end: 20140220

REACTIONS (3)
  - Pericardial effusion [Recovered/Resolved]
  - Coagulopathy [Unknown]
  - Vessel puncture site haematoma [Not Recovered/Not Resolved]
